FAERS Safety Report 12715227 (Version 1)
Quarter: 2016Q3

REPORT INFORMATION
  Report Type: Spontaneous
  Country: US (occurrence: US)
  Receive Date: 20160906
  Receipt Date: 20160906
  Transmission Date: 20161109
  Serious: Yes (Other)
  Sender: FDA-Public Use
  Company Number: US-AMGEN-USASP2016115418

PATIENT
  Sex: Male

DRUGS (1)
  1. ENBREL [Suspect]
     Active Substance: ETANERCEPT
     Indication: PSORIATIC ARTHROPATHY
     Dosage: UNK UNK, UNK
     Route: 065
     Dates: start: 2009

REACTIONS (5)
  - Incorrect product storage [Unknown]
  - Hypertension [Unknown]
  - Heart rate abnormal [Unknown]
  - Cardiac disorder [Unknown]
  - Chest discomfort [Unknown]
